FAERS Safety Report 4873350-2 (Version None)
Quarter: 2006Q1

REPORT INFORMATION
  Report Type: 
  Country: None (occurrence: None)
  Receive Date: 20060105
  Receipt Date: 20051220
  Transmission Date: 20060701
  Serious: Yes (Other)
  Sender: FDA-Public Use
  Company Number: US-ROCHE-429595

PATIENT
  Age: 48 Year
  Sex: Female
  Weight: 45.8 kg

DRUGS (4)
  1. PEGASYS [Suspect]
     Indication: HEPATITIS C
     Route: 058
     Dates: start: 20051001, end: 20051127
  2. COPEGUS [Suspect]
     Indication: HEPATITIS C
     Route: 048
     Dates: start: 20051001
  3. COPEGUS [Suspect]
     Route: 048
  4. COPEGUS [Suspect]
     Route: 048
     Dates: end: 20051127

REACTIONS (13)
  - ASTHENIA [None]
  - CHILLS [None]
  - COUGH [None]
  - DEPRESSION [None]
  - DRY THROAT [None]
  - HAEMOCHROMATOSIS [None]
  - HYPERHIDROSIS [None]
  - MYALGIA [None]
  - PARAESTHESIA [None]
  - RED BLOOD CELL COUNT DECREASED [None]
  - TREMOR [None]
  - WEIGHT DECREASED [None]
  - WHITE BLOOD CELL COUNT DECREASED [None]
